FAERS Safety Report 11467884 (Version 1)
Quarter: 2015Q3

REPORT INFORMATION
  Report Type: Spontaneous
  Country: US (occurrence: None)
  Receive Date: 20150904
  Receipt Date: 20150904
  Transmission Date: 20151125
  Serious: Yes (Other)
  Sender: FDA-Public Use
  Company Number: None

PATIENT
  Sex: Female

DRUGS (1)
  1. EXJADE [Suspect]
     Active Substance: DEFERASIROX
     Indication: IRON METABOLISM DISORDER
     Dosage: 500MG 2 TABS QD ORAL
     Route: 048
     Dates: start: 20140805

REACTIONS (3)
  - Renal disorder [None]
  - Liver disorder [None]
  - Treatment failure [None]
